FAERS Safety Report 7074673-1 (Version None)
Quarter: 2010Q4

REPORT INFORMATION
  Report Type: 
  Country: None (occurrence: None)
  Receive Date: 20101029
  Receipt Date: 20101021
  Transmission Date: 20110411
  Serious: Yes (Other)
  Sender: FDA-Public Use
  Company Number: B0681244A

PATIENT
  Sex: Male
  Weight: 92 kg

DRUGS (3)
  1. AUGMENTIN '125' [Suspect]
     Indication: PNEUMONIA
     Route: 065
     Dates: start: 20100908, end: 20100913
  2. OMEPRAZOLE [Concomitant]
     Indication: PRODUCT USED FOR UNKNOWN INDICATION
     Dosage: 20MG PER DAY
     Route: 065
     Dates: start: 19950101
  3. BECLOMETHASONE DIPROPIONATE [Concomitant]
     Indication: PRODUCT USED FOR UNKNOWN INDICATION
     Route: 065
     Dates: start: 19950101

REACTIONS (6)
  - CONFUSIONAL STATE [None]
  - CONVULSION [None]
  - HEADACHE [None]
  - INSOMNIA [None]
  - NECK PAIN [None]
  - TREMOR [None]
